FAERS Safety Report 4358723-9 (Version None)
Quarter: 2004Q2

REPORT INFORMATION
  Report Type: 
  Country: None (occurrence: None)
  Receive Date: 20040517
  Receipt Date: 20040318
  Transmission Date: 20050107
  Serious: Yes (Hospitalization, Other)
  Sender: FDA-Public Use
  Company Number: PHNU2004DE01279

PATIENT
  Age: 66 Year
  Sex: Male

DRUGS (5)
  1. ZOMETA [Suspect]
     Indication: PROSTATE CANCER METASTATIC
     Dosage: 4 MG, QMO
     Route: 042
     Dates: start: 20030101
  2. CASODEX [Suspect]
     Route: 048
     Dates: end: 20040304
  3. CYPROTERONE ACETATE [Suspect]
     Route: 048
  4. HERBAL EXTRACTS NOS [Concomitant]
     Dosage: UNK, UNK
     Route: 065
  5. PROFACT - SLOW RELEASE [Suspect]
     Route: 065

REACTIONS (6)
  - BLOOD ALKALINE PHOSPHATASE INCREASED [None]
  - CONDITION AGGRAVATED [None]
  - GENERAL PHYSICAL HEALTH DETERIORATION [None]
  - HEPATIC ENZYME INCREASED [None]
  - HEPATITIS TOXIC [None]
  - PROTHROMBIN TIME PROLONGED [None]
